FAERS Safety Report 24838474 (Version 2)
Quarter: 2025Q1

REPORT INFORMATION
  Report Type: Spontaneous
  Country: US (occurrence: US)
  Receive Date: 20250113
  Receipt Date: 20250213
  Transmission Date: 20250409
  Serious: No
  Sender: PFIZER
  Company Number: US-PFIZER INC-PV202500004370

PATIENT
  Age: 9 Year
  Sex: Female
  Weight: 22.8 kg

DRUGS (3)
  1. GENOTROPIN [Suspect]
     Active Substance: SOMATROPIN
     Indication: Small for dates baby
     Dosage: 1.4 MG, DAILY (7 DAYS/WEEK)
     Route: 058
     Dates: start: 2023
  2. GENOTROPIN [Suspect]
     Active Substance: SOMATROPIN
     Indication: Short stature
     Dosage: 0.8 MG, DAILY AT NIGHT
     Route: 058
     Dates: start: 202401
  3. GENOTROPIN [Suspect]
     Active Substance: SOMATROPIN
     Dosage: 1.4 MG, DAILY AT NIGHT
     Route: 058
     Dates: start: 20241113

REACTIONS (3)
  - Serum ferritin decreased [Unknown]
  - Cystatin C increased [Unknown]
  - Glomerular filtration rate decreased [Unknown]
